FAERS Safety Report 20204280 (Version 1)
Quarter: 2021Q4

REPORT INFORMATION
  Report Type: Spontaneous
  Country: AU (occurrence: AU)
  Receive Date: 20211220
  Receipt Date: 20211220
  Transmission Date: 20220303
  Serious: Yes (Other)
  Sender: FDA-Public Use
  Company Number: None

PATIENT
  Sex: Female

DRUGS (1)
  1. TRASTUZUMAB [Suspect]
     Active Substance: TRASTUZUMAB
     Indication: Cervix carcinoma
     Dosage: UNKNOWN
     Route: 065

REACTIONS (3)
  - Disease progression [Unknown]
  - Urogenital fistula [Unknown]
  - Product use in unapproved indication [Unknown]
